FAERS Safety Report 6686492-6 (Version None)
Quarter: 2010Q2

REPORT INFORMATION
  Report Type: 
  Country: None (occurrence: None)
  Receive Date: 20100419
  Receipt Date: 20100407
  Transmission Date: 20101027
  Serious: Yes (Hospitalization, Other)
  Sender: FDA-Public Use
  Company Number: US-ROCHE-688048

PATIENT
  Sex: Female
  Weight: 85.7 kg

DRUGS (5)
  1. AVASTIN [Suspect]
     Indication: OVARIAN CANCER
     Route: 042
     Dates: start: 20090910
  2. AVASTIN [Suspect]
     Route: 042
     Dates: start: 20091001, end: 20091210
  3. AVASTIN [Suspect]
     Route: 042
     Dates: end: 20091218
  4. AVASTIN [Suspect]
     Route: 042
     Dates: start: 20100305
  5. DOXIL [Concomitant]
     Dosage: DOSE 40 MG/M2
     Dates: start: 20091009, end: 20091204

REACTIONS (3)
  - CARDIAC TAMPONADE [None]
  - PERICARDIAL EFFUSION [None]
  - PLEURAL EFFUSION [None]
